FAERS Safety Report 8137676-1 (Version None)
Quarter: 2012Q1

REPORT INFORMATION
  Report Type: 
  Country: None (occurrence: None)
  Receive Date: 20120215
  Receipt Date: 20120209
  Transmission Date: 20120608
  Serious: No
  Sender: FDA-Public Use
  Company Number: US-PFIZER INC-2012033274

PATIENT
  Age: 39 Year
  Sex: Female

DRUGS (2)
  1. LO/OVRAL-28 [Suspect]
     Indication: OFF LABEL USE
  2. LO/OVRAL-28 [Suspect]
     Indication: ENDOMETRIOSIS

REACTIONS (1)
  - METRORRHAGIA [None]
